FAERS Safety Report 8569664-5 (Version None)
Quarter: 2012Q3

REPORT INFORMATION
  Report Type: 
  Country: None (occurrence: None)
  Receive Date: 20120803
  Receipt Date: 20120330
  Transmission Date: 20120928
  Serious: No
  Sender: FDA-Public Use
  Company Number: US-ABBOTT-12P-163-0918200-00

PATIENT
  Sex: Female
  Weight: 88.53 kg

DRUGS (3)
  1. NIASPAN [Suspect]
     Indication: BLOOD TRIGLYCERIDES INCREASED
     Dates: start: 20120316, end: 20120316
  2. GEMFIBROZIL [Concomitant]
     Indication: BLOOD TRIGLYCERIDES INCREASED
  3. BIRTH CONTROL PILL [Concomitant]
     Indication: PRODUCT USED FOR UNKNOWN INDICATION

REACTIONS (3)
  - VIITH NERVE PARALYSIS [None]
  - FEELING HOT [None]
  - HYPOAESTHESIA [None]
